FAERS Safety Report 6431791-6 (Version None)
Quarter: 2009Q4

REPORT INFORMATION
  Report Type: 
  Country: None (occurrence: None)
  Receive Date: 20091104
  Receipt Date: 20091029
  Transmission Date: 20100525
  Serious: Yes (Hospitalization)
  Sender: FDA-Public Use
  Company Number: 2008SP003474

PATIENT
  Age: 60 Year
  Sex: Female
  Weight: 77.6 kg

DRUGS (3)
  1. TEMODAL [Suspect]
     Indication: DRUG USE FOR UNKNOWN INDICATION
     Dosage: 140 MG; ; PO
     Route: 048
     Dates: start: 20071122, end: 20071222
  2. DOMPERIDONE [Concomitant]
  3. PHENYTOIN [Concomitant]

REACTIONS (2)
  - NEUTROPENIC SEPSIS [None]
  - THROMBOCYTOPENIA [None]
